FAERS Safety Report 4348941-8 (Version None)
Quarter: 2004Q2

REPORT INFORMATION
  Report Type: 
  Country: None (occurrence: None)
  Receive Date: 20040423
  Receipt Date: 20040414
  Transmission Date: 20050107
  Serious: Yes (Other)
  Sender: FDA-Public Use
  Company Number: GBWYE705216APR04

PATIENT
  Age: 37 Year
  Sex: Female

DRUGS (3)
  1. EFFEXOR XR [Suspect]
     Indication: DEPRESSION
     Dosage: 75MG ORAL; 10 X 75MG TABLETS IN OVERDOSE
     Route: 048
     Dates: start: 20040318, end: 20040325
  2. EFFEXOR XR [Suspect]
     Indication: DEPRESSION
     Dosage: 75MG ORAL; 10 X 75MG TABLETS IN OVERDOSE
     Route: 048
     Dates: start: 20040327, end: 20040327
  3. ALCOHOL (ETHANOL,  , 0) [Suspect]
     Dates: start: 20040327, end: 20040327

REACTIONS (3)
  - DRUG WITHDRAWAL SYNDROME [None]
  - INTENTIONAL OVERDOSE [None]
  - SUICIDE ATTEMPT [None]
